FAERS Safety Report 5071813-0 (Version None)
Quarter: 2006Q3

REPORT INFORMATION
  Report Type: 
  Country: None (occurrence: None)
  Receive Date: 20060801
  Receipt Date: 20060724
  Transmission Date: 20061208
  Serious: Yes (Other)
  Sender: FDA-Public Use
  Company Number: 111641ISR

PATIENT
  Age: 42 Year
  Sex: Female

DRUGS (3)
  1. GLATIRAMER ACETATE [Suspect]
     Indication: MULTIPLE SCLEROSIS
     Dosage: SUBCUTANEOUS
     Route: 058
     Dates: start: 20050216
  2. MEDICINAL MARIHUANA [Concomitant]
  3. GABAPENTIN [Concomitant]

REACTIONS (1)
  - VULVAL CANCER [None]
